FAERS Safety Report 12382254 (Version 1)
Quarter: 2016Q2

REPORT INFORMATION
  Report Type: Spontaneous
  Country: US (occurrence: US)
  Receive Date: 20160518
  Receipt Date: 20160518
  Transmission Date: 20160815
  Serious: No
  Sender: FDA-Public Use
  Company Number: US-BAYER-2016-090327

PATIENT
  Age: 80 Year
  Sex: Male
  Weight: 87.98 kg

DRUGS (7)
  1. BAYER LOW DOSE [Suspect]
     Active Substance: ASPIRIN
     Indication: ISCHAEMIC HEART DISEASE PROPHYLAXIS
     Dosage: 1 DF, QD
     Route: 048
  2. PRILOSEC [Concomitant]
     Active Substance: OMEPRAZOLE MAGNESIUM
  3. NORVASC [Concomitant]
     Active Substance: AMLODIPINE BESYLATE
  4. MIRALAX [Suspect]
     Active Substance: POLYETHYLENE GLYCOL 3350
     Dosage: UNK ONCE TOOK FIVE TIMES
     Dates: start: 20160509, end: 20160509
  5. CENTRUM SILVER [Concomitant]
     Active Substance: MINERALS\VITAMINS
  6. CALTRATE PLUS [CALCIUM CARBONATE,COLECALCIFEROL] [Concomitant]
  7. MIRALAX [Suspect]
     Active Substance: POLYETHYLENE GLYCOL 3350
     Dosage: 1 DF, QD
     Route: 048

REACTIONS (8)
  - Feeling abnormal [Not Recovered/Not Resolved]
  - Muscle spasms [Not Recovered/Not Resolved]
  - Pain [Not Recovered/Not Resolved]
  - Nausea [Not Recovered/Not Resolved]
  - Product use issue [None]
  - Eating disorder [Not Recovered/Not Resolved]
  - Insomnia [None]
  - Accidental exposure to product [None]

NARRATIVE: CASE EVENT DATE: 20160509
